FAERS Safety Report 9221446 (Version 1)
Quarter: 2013Q2

REPORT INFORMATION
  Report Type: Spontaneous
  Country: US (occurrence: US)
  Receive Date: 20130410
  Receipt Date: 20130410
  Transmission Date: 20140414
  Serious: No
  Sender: FDA-Public Use
  Company Number: US-009507513-1304USA003675

PATIENT
  Sex: Male
  Weight: 131.97 kg

DRUGS (1)
  1. MEVACOR TABLET [Suspect]
     Route: 048

REACTIONS (1)
  - Drug hypersensitivity [Unknown]
